FAERS Safety Report 5750484-1 (Version None)
Quarter: 2008Q2

REPORT INFORMATION
  Report Type: 
  Country: None (occurrence: None)
  Receive Date: 20080528
  Receipt Date: 20070828
  Transmission Date: 20081010
  Serious: No
  Sender: FDA-Public Use
  Company Number: US-KINGPHARMUSA00001-K200701119

PATIENT

DRUGS (6)
  1. AVINZA [Suspect]
     Indication: BACK PAIN
     Dosage: 60 MG, QD
     Route: 048
     Dates: start: 20070719, end: 20070723
  2. ALPRAZOLAM [Concomitant]
     Indication: ANXIETY DISORDER
     Dosage: 1.5 MG, QID
     Route: 048
  3. ATIVAN [Concomitant]
     Indication: SLEEP DISORDER
     Dosage: 2 MG, QHS
     Route: 048
  4. NEXIUM [Concomitant]
     Indication: GASTROOESOPHAGEAL REFLUX DISEASE
     Dosage: 40 MG, BID
     Route: 048
  5. PERCOCET [Concomitant]
     Indication: PAIN
     Dosage: 10 MG, PRN, 3-6 TIMES DAY
     Route: 048
     Dates: end: 20070719
  6. PERCOCET [Concomitant]
     Dosage: 10 MG, PRN, 3-6 + TIMES PER DAY
     Route: 048
     Dates: start: 20070724

REACTIONS (4)
  - ANOREXIA [None]
  - ASTHENIA [None]
  - FATIGUE [None]
  - MOOD ALTERED [None]
